FAERS Safety Report 9758083 (Version 1)
Quarter: 2013Q4

REPORT INFORMATION
  Report Type: Spontaneous
  Country: DE (occurrence: DE)
  Receive Date: 20131216
  Receipt Date: 20131216
  Transmission Date: 20140711
  Serious: Yes (Congenital Anomaly)
  Sender: FDA-Public Use
  Company Number: DE-SA-2013SA129968

PATIENT
  Age: 1 Day
  Sex: Male
  Weight: 3.25 kg

DRUGS (3)
  1. DDAVP [Suspect]
     Indication: HYPOPITUITARISM
     Route: 064
  2. LEVOTHYROXINE [Concomitant]
     Indication: MYXOEDEMA
     Route: 064
  3. FOLIC ACID [Concomitant]
     Indication: PROPHYLAXIS OF NEURAL TUBE DEFECT
     Route: 064

REACTIONS (6)
  - Renal fusion anomaly [Unknown]
  - Exposure during pregnancy [Unknown]
  - Ventricular septal defect [Unknown]
  - Exposure during pregnancy [Unknown]
  - Congenital aortic anomaly [Unknown]
  - Exposure during pregnancy [Unknown]
